FAERS Safety Report 9261947 (Version 2)
Quarter: 2013Q2

REPORT INFORMATION
  Report Type: Spontaneous
  Country: TR (occurrence: TR)
  Receive Date: 20130429
  Receipt Date: 20130520
  Transmission Date: 20140414
  Serious: Yes (Other)
  Sender: FDA-Public Use
  Company Number: TR-PFIZER INC-2013118874

PATIENT
  Age: 40 Year
  Sex: Female

DRUGS (7)
  1. CHAMPIX [Suspect]
     Indication: SMOKING CESSATION THERAPY
     Dosage: 0.5 MG, 1X/DAY
     Dates: start: 20130409, end: 201304
  2. CHAMPIX [Suspect]
     Dosage: 0.5 MG, 2X/DAY
     Dates: start: 201304, end: 201304
  3. CHAMPIX [Suspect]
     Dosage: UNK
     Dates: start: 201304, end: 20130413
  4. CHAMPIX [Suspect]
     Dosage: 1 MG, 1X/DAY
     Dates: start: 20130424
  5. LIPITOR [Concomitant]
     Dosage: 20 MG, EVERY OTHER DAY
     Dates: start: 2010
  6. DESOLETT [Concomitant]
     Dosage: UNK
     Dates: start: 1990
  7. LANSOR [Concomitant]
     Dosage: UNK

REACTIONS (8)
  - Cognitive disorder [Recovered/Resolved]
  - Confusional state [Recovered/Resolved]
  - Disturbance in attention [Recovered/Resolved]
  - Sleep disorder [Not Recovered/Not Resolved]
  - Abnormal dreams [Not Recovered/Not Resolved]
  - Drug intolerance [Unknown]
  - Nausea [Not Recovered/Not Resolved]
  - Vomiting [Recovered/Resolved]
